FAERS Safety Report 6413454-6 (Version None)
Quarter: 2009Q4

REPORT INFORMATION
  Report Type: 
  Country: None (occurrence: None)
  Receive Date: 20091026
  Receipt Date: 20091014
  Transmission Date: 20100525
  Serious: No
  Sender: FDA-Public Use
  Company Number: US-B.I. PHARMACEUTICALS,INC./RIDGEFIELD-2009-BP-12006BP

PATIENT
  Sex: Male

DRUGS (3)
  1. SPIRIVA [Suspect]
     Indication: CHRONIC OBSTRUCTIVE PULMONARY DISEASE
     Dosage: 18 MCG
     Route: 055
     Dates: start: 20090401
  2. PROPRANOLOL [Concomitant]
     Indication: TREMOR
     Dates: start: 19950101
  3. PRED FORTE [Concomitant]
     Indication: HERPES ZOSTER
     Dates: start: 20030101

REACTIONS (1)
  - VISUAL IMPAIRMENT [None]
